FAERS Safety Report 18273483 (Version 2)
Quarter: 2020Q3

REPORT INFORMATION
  Report Type: Spontaneous
  Country: BR (occurrence: BR)
  Receive Date: 20200916
  Receipt Date: 20200922
  Transmission Date: 20201103
  Serious: Yes (Death, Hospitalization)
  Sender: FDA-Public Use
  Company Number: BR-MYLANLABS-2020M1078981

PATIENT
  Age: 23 Year
  Sex: Female
  Weight: 64 kg

DRUGS (2)
  1. CISPLATIN. [Suspect]
     Active Substance: CISPLATIN
     Indication: LEUKOPLAKIA
  2. CISPLATIN. [Suspect]
     Active Substance: CISPLATIN
     Indication: SQUAMOUS CELL CARCINOMA
     Dosage: CISPLATIN 50MG / 50ML. DOSE: 100; QUANTITY: 150; UNIT: MILLIGRAM;DURATION: 02 MINUTES
     Route: 042
     Dates: start: 20190125, end: 20190128

REACTIONS (7)
  - Cardio-respiratory arrest [Fatal]
  - Nausea [Not Recovered/Not Resolved]
  - Acute respiratory failure [Fatal]
  - Acute kidney injury [Fatal]
  - Metabolic acidosis [Fatal]
  - Diarrhoea [Not Recovered/Not Resolved]
  - Vomiting [Not Recovered/Not Resolved]

NARRATIVE: CASE EVENT DATE: 20190126
